FAERS Safety Report 7519346-3 (Version None)
Quarter: 2011Q2

REPORT INFORMATION
  Report Type: 
  Country: None (occurrence: None)
  Receive Date: 20110602
  Receipt Date: 20110524
  Transmission Date: 20111010
  Serious: Yes (Hospitalization)
  Sender: FDA-Public Use
  Company Number: BE-ASTRAZENECA-2011SE31058

PATIENT
  Age: 27349 Day
  Sex: Male
  Weight: 67 kg

DRUGS (13)
  1. SINTROM [Concomitant]
     Dosage: DAILY
  2. SPIRIVA [Concomitant]
     Dosage: DAILY
     Dates: start: 20110324
  3. DILTIAZEM HCL [Concomitant]
     Dates: start: 20110120
  4. ALDACTONE [Concomitant]
     Dates: start: 20100406
  5. PANTOMED [Concomitant]
     Dosage: DAILY
  6. BUMETANIDE [Concomitant]
     Dosage: DAILY
  7. TRAMADOL HCL [Concomitant]
     Dosage: TWO TIMES A DAY
  8. SERETIDE [Concomitant]
     Dosage: TWO TIMES A DAY
     Dates: start: 20110101
  9. LUCRIN [Concomitant]
     Dosage: EVERY THREE MONTHS
     Dates: start: 20080801
  10. CASODEX [Suspect]
     Route: 048
     Dates: start: 20100316, end: 20110408
  11. LANOXIN [Concomitant]
     Dosage: DAILY
  12. ZESTRIL [Concomitant]
     Dosage: DAILY
  13. PERSANTINE [Concomitant]
     Dates: end: 20100101

REACTIONS (7)
  - GASTRIC POLYPS [None]
  - DYSPNOEA [None]
  - OESOPHAGEAL ULCER [None]
  - INTERNATIONAL NORMALISED RATIO ABNORMAL [None]
  - VARICES OESOPHAGEAL [None]
  - ASCITES [None]
  - OEDEMA PERIPHERAL [None]
